FAERS Safety Report 5096381-9 (Version None)
Quarter: 2006Q3

REPORT INFORMATION
  Report Type: 
  Country: None (occurrence: None)
  Receive Date: 20060830
  Receipt Date: 20060814
  Transmission Date: 20061208
  Serious: Yes (Life-Threatening, Hospitalization)
  Sender: FDA-Public Use
  Company Number: 2006RR-03417

PATIENT
  Age: 72 Year
  Sex: Male

DRUGS (12)
  1. AMOXICILLIN [Suspect]
     Dosage: 500 MG, TID, ORAL
     Route: 048
  2. CARBOPLATIN [Suspect]
     Dosage: QID,
     Dates: start: 20060201
  3. GEMCITABINE [Suspect]
     Dosage: QID,
     Dates: start: 20060201
  4. OMEPRAZOLE (OMEPRAZOLE) TABLET, 20MG [Suspect]
     Dosage: 20 MG,
     Dates: start: 20060601
  5. SIMVASTATIN (SIMVASTATIN) 80MG [Suspect]
     Indication: BLOOD CHOLESTEROL INCREASED
     Dosage: 80 MG, QD,
     Dates: start: 20060601
  6. ASPIRIN [Concomitant]
  7. ATENOLOL [Concomitant]
  8. CHLORDIAZEPOXIDE CAPSULE 10MG BP (CHLORDIAZEPOXIDE) CAPSULE, 10 MG [Concomitant]
  9. CIPROFLOXACIN [Concomitant]
  10. CLARITHROMYCIN [Concomitant]
  11. CORACTEN XL [Concomitant]
  12. GRANISTERON [Concomitant]

REACTIONS (2)
  - RENAL FAILURE ACUTE [None]
  - RHABDOMYOLYSIS [None]
